FAERS Safety Report 22263664 (Version 2)
Quarter: 2025Q3

REPORT INFORMATION
  Report Type: Spontaneous
  Country: JP (occurrence: JP)
  Receive Date: 20230428
  Receipt Date: 20250711
  Transmission Date: 20251020
  Serious: Yes (Death, Other)
  Sender: UNITED THERAPEUTICS
  Company Number: JP-UNITED THERAPEUTICS-UNT-2021-007636

PATIENT
  Age: 48 Year
  Sex: Male

DRUGS (1)
  1. REMODULIN [Suspect]
     Active Substance: TREPROSTINIL
     Indication: Pulmonary arterial hypertension

REACTIONS (2)
  - Pulmonary hypertension [Fatal]
  - Injection site pain [Unknown]

NARRATIVE: CASE EVENT DATE: 20210401
